FAERS Safety Report 8437369-7 (Version None)
Quarter: 2012Q2

REPORT INFORMATION
  Report Type: 
  Country: None (occurrence: None)
  Receive Date: 20120614
  Receipt Date: 20120314
  Transmission Date: 20120825
  Serious: No
  Sender: FDA-Public Use
  Company Number: US-AMGEN-USASP2012010100

PATIENT
  Age: 65 Year
  Sex: Female

DRUGS (6)
  1. ZOLPIDEM [Concomitant]
     Dosage: 5 MG, QHS
     Dates: start: 20111227
  2. WOMEN'S MULTI [Concomitant]
     Dosage: UNK
  3. PROLIA [Suspect]
     Indication: OSTEOPOROSIS POSTMENOPAUSAL
     Dosage: 60 MG, Q6MO
     Route: 058
     Dates: start: 20111004
  4. CALCIUM WITH VITAMIN D [Concomitant]
     Dosage: UNK
  5. CHLORHEXIDINE GLUCONATE [Concomitant]
     Dosage: UNK
     Dates: start: 20111019
  6. LEVOXYL [Concomitant]
     Dosage: 150 MUG, QWK
     Dates: start: 20111230

REACTIONS (4)
  - NECK PAIN [None]
  - WEIGHT INCREASED [None]
  - ARTHRALGIA [None]
  - MUSCULOSKELETAL PAIN [None]
